FAERS Safety Report 4774298-4 (Version None)
Quarter: 2005Q3

REPORT INFORMATION
  Report Type: 
  Country: None (occurrence: None)
  Receive Date: 20050914
  Receipt Date: 20050303
  Transmission Date: 20060218
  Serious: Yes (Hospitalization)
  Sender: FDA-Public Use
  Company Number: 163-20785-05030116

PATIENT
  Age: 67 Year
  Sex: Male

DRUGS (2)
  1. THALOMID [Suspect]
     Indication: MULTIPLE MYELOMA
     Dosage: 200 MG, QD, ORAL
     Route: 048
     Dates: start: 20050124, end: 20050129
  2. NARCOTICS [Suspect]

REACTIONS (5)
  - ABDOMINAL DISTENSION [None]
  - DISORIENTATION [None]
  - HYPOTENSION [None]
  - PNEUMONIA STAPHYLOCOCCAL [None]
  - SEPSIS [None]
